FAERS Safety Report 12464883 (Version 6)
Quarter: 2016Q3

REPORT INFORMATION
  Report Type: Report from Study
  Country: BE (occurrence: BE)
  Receive Date: 20160614
  Receipt Date: 20160929
  Transmission Date: 20161109
  Serious: Yes (Death, Hospitalization)
  Sender: FDA-Public Use
  Company Number: BE-ABBVIE-16P-013-1649731-00

PATIENT
  Sex: Male

DRUGS (11)
  1. DUODOPA [Suspect]
     Active Substance: CARBIDOPA\LEVODOPA
     Indication: PARKINSON^S DISEASE
     Dosage: UNKNOWN
     Route: 050
     Dates: start: 20090302, end: 20100224
  2. DUODOPA [Suspect]
     Active Substance: CARBIDOPA\LEVODOPA
     Dosage: AM: 3ML; CD: 2.2ML/H FOR 16HRS; ED: 2ML
     Route: 050
     Dates: start: 20160607, end: 20160715
  3. DUODOPA [Suspect]
     Active Substance: CARBIDOPA\LEVODOPA
     Dosage: AM=1.5ML, CD=2ML/HR DURING 16HRS, ED=1ML
     Route: 050
     Dates: start: 20160715
  4. PROLOPA HBS [Concomitant]
     Active Substance: BENSERAZIDE\LEVODOPA
     Indication: PRODUCT USED FOR UNKNOWN INDICATION
     Dosage: FORM STRENGTH: 100MG/25MG WHEN GOING TO BED
     Dates: start: 20140605, end: 20151208
  5. ESCITALOPRAM [Concomitant]
     Active Substance: ESCITALOPRAM OXALATE
     Indication: PRODUCT USED FOR UNKNOWN INDICATION
     Dates: start: 201111
  6. PROLOPA [Concomitant]
     Active Substance: BENSERAZIDE\LEVODOPA
     Indication: PARKINSON^S DISEASE
     Dosage: FORM STRENGHT: 200MG /50MG AS REQUIRED (EMERGENCY MEDICATION)
  7. DUODOPA [Suspect]
     Active Substance: CARBIDOPA\LEVODOPA
     Dosage: DOSAGES CONTINUOUSLY MONITORED AND ADAPTED
     Route: 050
     Dates: start: 20100914, end: 20160406
  8. PROLOPA HBS [Concomitant]
     Active Substance: BENSERAZIDE\LEVODOPA
     Dosage: WHEN GOING TO BED
     Dates: start: 20141216
  9. PROLOPA [Concomitant]
     Active Substance: BENSERAZIDE\LEVODOPA
     Indication: PRODUCT USED FOR UNKNOWN INDICATION
     Dosage: FORM STRENGHT: 125MG / 25MG 30 MIN PRIOR TO STARTING DUODOPA PUMP
     Dates: start: 20150612, end: 201507
  10. DUODOPA [Suspect]
     Active Substance: CARBIDOPA\LEVODOPA
     Dosage: AM: 3ML; CD: 2.6ML/H FOR 16HRS; ED: 2ML
     Route: 050
     Dates: start: 20160406, end: 20160607
  11. DUODOPA [Suspect]
     Active Substance: CARBIDOPA\LEVODOPA
     Dosage: AM: 7ML; CD: 2.7ML/H FOR 16HRS; ED: 1.5ML
     Route: 050
     Dates: start: 20100224, end: 20100914

REACTIONS (8)
  - Oxygen saturation decreased [Unknown]
  - Cachexia [Unknown]
  - Fall [Recovered/Resolved]
  - Intentional medical device removal by patient [Unknown]
  - Dyskinesia [Recovering/Resolving]
  - Asthenia [Fatal]
  - Confusional state [Unknown]
  - Hip fracture [Unknown]
